FAERS Safety Report 7057247-8 (Version None)
Quarter: 2010Q4

REPORT INFORMATION
  Report Type: 
  Country: None (occurrence: None)
  Receive Date: 20101021
  Receipt Date: 20101021
  Transmission Date: 20110411
  Serious: No
  Sender: FDA-Public Use
  Company Number: None

PATIENT
  Age: 64 Year
  Sex: Male
  Weight: 90.7194 kg

DRUGS (2)
  1. DESOXIMETASONE [Suspect]
     Indication: PSORIASIS
     Dosage: THIN LAYER TO AFFECTED AREA APPLY TWICE DAILY TOP
     Route: 061
     Dates: start: 20101001, end: 20101020
  2. DESOXIMETASONE [Suspect]

REACTIONS (2)
  - PRODUCT QUALITY ISSUE [None]
  - SKIN EXFOLIATION [None]
